FAERS Safety Report 9003615 (Version 1)
Quarter: 2013Q1

REPORT INFORMATION
  Report Type: Other
  Country: IT (occurrence: IT)
  Receive Date: 20130108
  Receipt Date: 20130108
  Transmission Date: 20140127
  Serious: Yes (Hospitalization)
  Sender: FDA-Public Use
  Company Number: IT-WATSON-2012-23383

PATIENT
  Age: 77 Year
  Sex: Female

DRUGS (5)
  1. ATENOLOL (UNKNOWN) [Suspect]
     Indication: DRUG ABUSE
     Dosage: NORMAL DOSE: 100MG FOR HYPERTENSION, DRUG ABUSE WITH 3 DOSAGE FORM TOTAL
     Route: 048
     Dates: start: 20120731, end: 20120801
  2. FEMARA [Concomitant]
     Indication: PRODUCT USED FOR UNKNOWN INDICATION
     Route: 065
  3. ZOLOFT [Concomitant]
     Indication: PRODUCT USED FOR UNKNOWN INDICATION
     Dosage: UNK, UNKNOWN
     Route: 065
  4. METFORMIN [Concomitant]
     Indication: PRODUCT USED FOR UNKNOWN INDICATION
     Dosage: UNK, UNKNOWN
     Route: 065
  5. MIRTAZAPINE [Concomitant]
     Indication: PRODUCT USED FOR UNKNOWN INDICATION
     Dosage: UNK, UNKNOWN
     Route: 065

REACTIONS (6)
  - Drug abuse [Unknown]
  - Tremor [Recovered/Resolved]
  - Vertigo [Recovered/Resolved]
  - Bradycardia [Recovered/Resolved]
  - Hypotension [Recovered/Resolved]
  - Nausea [Recovered/Resolved]
